FAERS Safety Report 9182260 (Version 1)
Quarter: 2013Q1

REPORT INFORMATION
  Report Type: Spontaneous
  Country: US (occurrence: None)
  Receive Date: 20130321
  Receipt Date: 20130321
  Transmission Date: 20140127
  Serious: Yes (Hospitalization)
  Sender: FDA-Public Use
  Company Number: None

PATIENT
  Age: 68 Year
  Sex: Male
  Weight: 117.94 kg

DRUGS (1)
  1. CLINDAMYCIN HYDROCLORIDE [Suspect]
     Indication: TOOTH ABSCESS
     Dosage: 300MG 7DAY SUPPLY PO
     Route: 048
     Dates: start: 20130123

REACTIONS (3)
  - Nausea [None]
  - Asthenia [None]
  - Clostridium colitis [None]
